FAERS Safety Report 16190682 (Version 2)
Quarter: 2019Q2

REPORT INFORMATION
  Report Type: Spontaneous
  Country: GB (occurrence: GB)
  Receive Date: 20190412
  Receipt Date: 20190619
  Transmission Date: 20190711
  Serious: Yes (Death, Hospitalization, Disabling, Other)
  Sender: FDA-Public Use
  Company Number: GB-MYLANLABS-2019M1034872

PATIENT
  Age: 59 Year
  Sex: Female

DRUGS (2)
  1. CARBOPLATIN. [Suspect]
     Active Substance: CARBOPLATIN
     Indication: OVARIAN CANCER
     Dosage: 1 DOSAGE FORM, MONTHLY,1 DF, QMO
     Route: 065
  2. WARFARIN [Suspect]
     Active Substance: WARFARIN
     Indication: DEEP VEIN THROMBOSIS
     Dosage: UNK
     Route: 065

REACTIONS (11)
  - Microangiopathic haemolytic anaemia [Unknown]
  - Arteriosclerosis [Unknown]
  - Acute kidney injury [Unknown]
  - Blood creatinine increased [Unknown]
  - Systemic scleroderma [Unknown]
  - Activated partial thromboplastin time prolonged [Unknown]
  - Cardiac arrest [Fatal]
  - Thrombocytopenia [Unknown]
  - Platelet count decreased [Unknown]
  - Melaena [Unknown]
  - International normalised ratio increased [Unknown]
